FAERS Safety Report 25215255 (Version 1)
Quarter: 2025Q2

REPORT INFORMATION
  Report Type: Spontaneous
  Country: US (occurrence: US)
  Receive Date: 20250418
  Receipt Date: 20250418
  Transmission Date: 20250716
  Serious: No
  Sender: MERZ
  Company Number: US-Merz Pharmaceuticals GmbH-2025040000111

PATIENT

DRUGS (3)
  1. XEOMIN [Suspect]
     Active Substance: INCOBOTULINUMTOXINA
     Indication: Skin wrinkling
     Dosage: 34 INTERNATIONAL UNIT
     Route: 030
     Dates: start: 20241205, end: 20241205
  2. XEOMIN [Suspect]
     Active Substance: INCOBOTULINUMTOXINA
     Indication: Skin wrinkling
     Dosage: 34 INTERNATIONAL UNIT
     Route: 030
     Dates: start: 20241205, end: 20241205
  3. XEOMIN [Suspect]
     Active Substance: INCOBOTULINUMTOXINA
     Indication: Skin cosmetic procedure

REACTIONS (3)
  - Drug ineffective [Unknown]
  - Underdose [Unknown]
  - Product preparation issue [Unknown]

NARRATIVE: CASE EVENT DATE: 20241205
